FAERS Safety Report 25600435 (Version 2)
Quarter: 2025Q3

REPORT INFORMATION
  Report Type: Report from Study
  Country: EU (occurrence: EU)
  Receive Date: 20250724
  Receipt Date: 20250829
  Transmission Date: 20251020
  Serious: Yes (Death)
  Sender: RECORDATI
  Company Number: EU-RECORDATI RARE DISEASE INC.-2025005094

PATIENT
  Sex: Male

DRUGS (5)
  1. SIGNIFOR LAR [Suspect]
     Active Substance: PASIREOTIDE PAMOATE
     Indication: Acromegaly
     Route: 030
     Dates: start: 20151118
  2. SIGNIFOR LAR [Suspect]
     Active Substance: PASIREOTIDE PAMOATE
     Indication: Pituitary tumour benign
     Route: 030
     Dates: start: 20151216
  3. SIGNIFOR LAR [Suspect]
     Active Substance: PASIREOTIDE PAMOATE
     Dosage: 60 MG, Q3W
     Route: 030
     Dates: start: 20160503
  4. SIGNIFOR LAR [Suspect]
     Active Substance: PASIREOTIDE PAMOATE
     Dosage: 60 MG, Q3W
     Route: 030
     Dates: start: 20250514
  5. SIGNIFOR LAR [Suspect]
     Active Substance: PASIREOTIDE PAMOATE
     Dosage: 60 MG (SOLVENS 2 ML), Q3W
     Route: 030
     Dates: start: 202506

REACTIONS (4)
  - Haemorrhage [Fatal]
  - Ganglioneuroma [Fatal]
  - Condition aggravated [Fatal]
  - Disease progression [Fatal]
